FAERS Safety Report 26204588 (Version 1)
Quarter: 2025Q4

REPORT INFORMATION
  Report Type: Spontaneous
  Country: US (occurrence: US)
  Receive Date: 20251227
  Receipt Date: 20251227
  Transmission Date: 20260117
  Serious: No
  Sender: CELLTRION
  Company Number: US-CELLTRION INC.-2025US039196

PATIENT

DRUGS (7)
  1. RITUXIMAB [Suspect]
     Active Substance: RITUXIMAB
     Indication: Evans syndrome
     Dosage: 1,000 MG IN 1,000 ML NS ON HOSPITAL DAY 4
     Route: 042
  2. METHYLPREDNISOLONE [Suspect]
     Active Substance: METHYLPREDNISOLONE
     Indication: Evans syndrome
     Dosage: HIGH-DOSE INTRAVENOUS METHYLPREDNISOLONE (1 MG/KG) WAS STARTED ON HOSPITAL DAY ONE
     Route: 042
  3. HUMAN IMMUNOGLOBULIN G [Suspect]
     Active Substance: HUMAN IMMUNOGLOBULIN G
     Indication: Evans syndrome
     Dosage: 1 G/KG/DAY
     Route: 042
  4. FOLIC ACID [Concomitant]
     Active Substance: FOLIC ACID
     Indication: Nutritional supplementation
  5. THIAMINE [Concomitant]
     Active Substance: THIAMINE
     Indication: Nutritional supplementation
  6. IRON [Concomitant]
     Active Substance: IRON
     Indication: Nutritional supplementation
     Route: 042
  7. ALLOPURINOL [Concomitant]
     Active Substance: ALLOPURINOL
     Indication: Hyperuricaemia

REACTIONS (1)
  - Drug effective for unapproved indication [Unknown]
